FAERS Safety Report 9132006 (Version 2)
Quarter: 2013Q1

REPORT INFORMATION
  Report Type: Report from Study
  Country: FR (occurrence: FR)
  Receive Date: 20130301
  Receipt Date: 20130327
  Transmission Date: 20140127
  Serious: Yes (Death)
  Sender: FDA-Public Use
  Company Number: FR-BRISTOL-MYERS SQUIBB COMPANY-17412719

PATIENT
  Age: 62 Year
  Sex: Female

DRUGS (36)
  1. BELATACEPT [Suspect]
     Indication: RENAL TRANSPLANT
     Dosage: NO OF CYLCES:2?LAST DOSE ON 08JAN2013
     Dates: start: 20070214
  2. SIMULECT [Suspect]
     Indication: IMMUNOSUPPRESSION
     Dosage: LAST DOSE ON 18FEB2007
     Dates: start: 20070215
  3. CELLCEPT [Suspect]
     Indication: IMMUNOSUPPRESSION
     Dosage: 14FEB07-03JUN07?04JUN07-08JUN07?11JUN07-ONGOING
     Dates: start: 20070214
  4. SOLU-MEDROL [Suspect]
     Indication: IMMUNOSUPPRESSION
     Dosage: LAST DOSE ON 15FEB2007
     Dates: start: 20070214
  5. CORTANCYL [Suspect]
     Dosage: 27-28FEB07;29FEB-2APR07;3APR-9MAY07;10MAY-8JUN07; LAST DOSE ON 13MAY2008
     Dates: start: 20070216
  6. CARDENSIEL [Concomitant]
     Indication: HYPERTENSION
     Dates: start: 20050809
  7. KAYEXALATE [Concomitant]
     Dosage: 05JUL08-CONT
     Dates: start: 20010821
  8. LEVOTHYROX [Concomitant]
     Dates: start: 200604
  9. NEORECORMON [Concomitant]
     Dates: start: 20010821
  10. MORPHINE [Concomitant]
     Dates: start: 20070214, end: 20070215
  11. BACTRIM [Concomitant]
     Dates: start: 20070215
  12. GELOX [Concomitant]
     Dates: start: 20070215
  13. NIZAXID [Concomitant]
     Dates: start: 20070215
  14. FORLAX [Concomitant]
     Dates: start: 20070215
  15. SODIUM BICARBONATE [Concomitant]
     Dosage: 14FEB07,15FEB07,17JAN08-28JUL10,29JUL10-C
     Dates: start: 20011015
  16. EUCALCIC [Concomitant]
     Dates: start: 20070215
  17. LASILIX [Concomitant]
     Dosage: 26FEB07?RESTARTED:27FEB07-CONT
     Dates: start: 20070215
  18. CALCIPARINE [Concomitant]
     Dates: start: 20070215
  19. PHOSPHALUGEL [Concomitant]
     Dates: start: 20070302
  20. FUNGIZONE [Concomitant]
     Dates: start: 20070302
  21. ROVALCYTE [Concomitant]
     Dosage: 02MAR07-19MAR07?20MAR07-09MAY07?10MAY07-?20MAY07-14AUG07
     Dates: start: 20070302
  22. PREVISCAN [Concomitant]
     Dosage: 14FEB07?06MAR07
     Dates: start: 20020423
  23. DIFFU-K [Concomitant]
     Dosage: 24FEB07?RESTARTED:02MAR07-22MAR07
     Dates: start: 20070219
  24. VITAMIN B12 [Concomitant]
     Dosage: 19MAR2007-25APR2007
     Dates: start: 20070309, end: 20080513
  25. PRETERAX [Concomitant]
     Indication: HYPERTENSION
     Dates: start: 20080729
  26. ALLOPURINOL [Concomitant]
     Dates: start: 20091022
  27. BICARBONATE [Concomitant]
     Dosage: 15FEB07-15FEB07?15FEB-21FEB07?17JAN08-28JUL10?29JUL10-02MAY11?03MAY11
     Dates: start: 20070215
  28. CALCIDIA [Concomitant]
     Dates: start: 20110210
  29. ZITHROMAX [Concomitant]
     Dates: start: 20071025
  30. INFLUENZA VACCINE [Concomitant]
     Dates: start: 20100106, end: 20100106
  31. UVEDOSE [Concomitant]
     Dates: start: 20100222, end: 20110728
  32. FURADANTINE [Concomitant]
     Dosage: 04SEP07-11SEP07?22NOV07-08DEC07?19DEC07-29DEC07
     Dates: start: 20070904, end: 20071229
  33. TENORMINE [Concomitant]
     Dates: start: 20070216, end: 20070224
  34. NUTRITIONAL SUPPLEMENT [Concomitant]
     Dates: start: 20070215, end: 20070305
  35. BOTULINUM A TOXIN [Concomitant]
     Dosage: 13AUG2009-13NOV2009
     Dates: start: 20090813, end: 20091113
  36. BOTULINUM B TOXIN [Concomitant]
     Dates: start: 20090813, end: 20091113

REACTIONS (1)
  - Cholangiocarcinoma [Fatal]
